FAERS Safety Report 24545088 (Version 1)
Quarter: 2024Q4

REPORT INFORMATION
  Report Type: Spontaneous
  Country: GB (occurrence: GB)
  Receive Date: 20241024
  Receipt Date: 20241024
  Transmission Date: 20250115
  Serious: Yes (Life-Threatening, Other)
  Sender: ASTELLAS
  Company Number: None

PATIENT
  Age: 52 Year
  Weight: 140 kg

DRUGS (1)
  1. MIRABEGRON [Suspect]
     Active Substance: MIRABEGRON
     Indication: Product used for unknown indication
     Dosage: 25 UNITS NOT REPORTED
     Route: 065
     Dates: start: 20241017, end: 20241019

REACTIONS (7)
  - Chest pain [Not Recovered/Not Resolved]
  - Heart rate increased [Unknown]
  - Migraine [Unknown]
  - Dizziness [Unknown]
  - Nausea [Unknown]
  - Hypoaesthesia [Unknown]
  - Asthenia [Unknown]

NARRATIVE: CASE EVENT DATE: 20241018
